FAERS Safety Report 7332930-5 (Version None)
Quarter: 2011Q1

REPORT INFORMATION
  Report Type: 
  Country: None (occurrence: None)
  Receive Date: 20110304
  Receipt Date: 20110218
  Transmission Date: 20110831
  Serious: Yes (Hospitalization)
  Sender: FDA-Public Use
  Company Number: PHHY2011ES13308

PATIENT
  Age: 74 Year
  Sex: Female

DRUGS (8)
  1. PRISDAL [Concomitant]
     Dosage: 20 MG, UNK
     Route: 048
  2. LITHIUM CARBONATE [Interacting]
     Indication: BIPOLAR DISORDER
     Dosage: 400 MG, BID
     Dates: start: 20100101, end: 20100928
  3. DISGREN [Concomitant]
  4. TEGRETOL [Interacting]
     Indication: ESSENTIAL TREMOR
     Dosage: 100 MG, TID
  5. METPHORMIN [Concomitant]
     Dosage: 850 MG, TID
  6. SIMVASTATIN [Suspect]
     Dosage: 20 MG, UNK
     Dates: start: 20100101
  7. OMEPRAZOLE [Concomitant]
     Dosage: 20 MG, UNK
  8. PRANDIN [Concomitant]
     Dosage: 2 MG, TID

REACTIONS (3)
  - GAIT DISTURBANCE [None]
  - TREMOR [None]
  - DRUG INTERACTION [None]
